FAERS Safety Report 7508588-9 (Version None)
Quarter: 2011Q2

REPORT INFORMATION
  Report Type: 
  Country: None (occurrence: None)
  Receive Date: 20110527
  Receipt Date: 20100823
  Transmission Date: 20111010
  Serious: No
  Sender: FDA-Public Use
  Company Number: A0878002A

PATIENT
  Age: 38 Year
  Sex: Male
  Weight: 70 kg

DRUGS (6)
  1. ACETAMINOPHEN [Concomitant]
     Dosage: 325MG AS REQUIRED
  2. SIMVASTATIN [Concomitant]
     Dosage: 20MG PER DAY
  3. ASPIRIN [Concomitant]
     Dosage: 81MG PER DAY
  4. FLOLAN [Suspect]
     Route: 042
     Dates: start: 20100301
  5. TRAMADOL HCL [Concomitant]
     Dosage: 50MG AS REQUIRED
  6. DOCUSATE [Concomitant]
     Dosage: 100MG AS REQUIRED

REACTIONS (2)
  - BACK PAIN [None]
  - PAIN IN EXTREMITY [None]
